FAERS Safety Report 4928537-7 (Version None)
Quarter: 2006Q1

REPORT INFORMATION
  Report Type: 
  Country: None (occurrence: None)
  Receive Date: 20060223
  Receipt Date: 20060213
  Transmission Date: 20060701
  Serious: Yes (Other)
  Sender: FDA-Public Use
  Company Number: 2006020998

PATIENT
  Age: 31 Year
  Sex: Female

DRUGS (1)
  1. NEOSPORIN [Suspect]
     Indication: LACERATION
     Dosage: TOPICAL
     Route: 061
     Dates: start: 20050801

REACTIONS (1)
  - DRUG HYPERSENSITIVITY [None]
